FAERS Safety Report 6645467-3 (Version None)
Quarter: 2010Q1

REPORT INFORMATION
  Report Type: 
  Country: None (occurrence: None)
  Receive Date: 20100322
  Receipt Date: 20100317
  Transmission Date: 20100710
  Serious: Yes (Death)
  Sender: FDA-Public Use
  Company Number: NZ-ASTRAZENECA-2007AP02725

PATIENT
  Age: 18627 Day
  Sex: Female
  Weight: 70 kg

DRUGS (9)
  1. SEROQUEL [Suspect]
     Indication: SCHIZOAFFECTIVE DISORDER
     Route: 048
     Dates: start: 20050106
  2. SEROQUEL [Suspect]
     Route: 048
     Dates: start: 20050106
  3. SEROQUEL [Suspect]
     Route: 048
     Dates: start: 20050909, end: 20060616
  4. PAROXETINE HCL [Concomitant]
     Indication: ANTIDEPRESSANT THERAPY
     Route: 048
     Dates: start: 20050408
  5. PAROXETINE HCL [Concomitant]
     Indication: SCHIZOAFFECTIVE DISORDER
     Route: 048
     Dates: start: 20050408
  6. PAROXETINE HCL [Concomitant]
     Route: 048
     Dates: start: 20051215, end: 20060616
  7. PAROXETINE HCL [Concomitant]
     Route: 048
     Dates: start: 20051215, end: 20060616
  8. NITRAZEPAM [Concomitant]
     Indication: ABNORMAL BEHAVIOUR
     Route: 048
     Dates: start: 20051215
  9. NITRAZEPAM [Concomitant]
     Route: 048
     Dates: start: 20050408, end: 20060616

REACTIONS (2)
  - OVERDOSE [None]
  - SUDDEN DEATH [None]
